FAERS Safety Report 5388628-6 (Version None)
Quarter: 2007Q3

REPORT INFORMATION
  Report Type: 
  Country: None (occurrence: None)
  Receive Date: 20070716
  Receipt Date: 20070713
  Transmission Date: 20080115
  Serious: Yes (Other)
  Sender: FDA-Public Use
  Company Number: CA-ROXANE LABORATORIES, INC-2007-BP-17394RO

PATIENT
  Age: 43 Year
  Sex: Male

DRUGS (1)
  1. MEFLOQUINE [Suspect]
     Indication: MALARIA PROPHYLAXIS
     Route: 048

REACTIONS (2)
  - MACULOPATHY [None]
  - RETINAL PIGMENTATION [None]
